FAERS Safety Report 13938234 (Version 1)
Quarter: 2017Q3

REPORT INFORMATION
  Report Type: Spontaneous
  Country: CA (occurrence: CA)
  Receive Date: 20170905
  Receipt Date: 20170905
  Transmission Date: 20171127
  Serious: Yes (Hospitalization, Other)
  Sender: FDA-Public Use
  Company Number: CA-PFIZER INC-2013097586

PATIENT
  Age: 85 Year
  Sex: Female

DRUGS (4)
  1. SOTALOL. [Concomitant]
     Active Substance: SOTALOL
     Dosage: 80 MG, 2X/DAY
  2. NOVASEN [Concomitant]
     Dosage: 325 MG, 1X/DAY
  3. CELEBREX [Suspect]
     Active Substance: CELECOXIB
     Indication: PRODUCT USED FOR UNKNOWN INDICATION
     Dosage: 100 MG, 2X/DAY
     Dates: start: 200106
  4. NORVASC [Concomitant]
     Active Substance: AMLODIPINE BESYLATE
     Dosage: 10 MG, 1X/DAY

REACTIONS (7)
  - Arteriosclerosis [Unknown]
  - Haemophilus infection [Unknown]
  - Ischaemic stroke [Unknown]
  - Blood urea increased [Unknown]
  - Osteoarthritis [Unknown]
  - Mitral valve incompetence [Unknown]
  - Candida infection [Unknown]

NARRATIVE: CASE EVENT DATE: 20020114
